FAERS Safety Report 8060965-6 (Version None)
Quarter: 2012Q1

REPORT INFORMATION
  Report Type: 
  Country: None (occurrence: None)
  Receive Date: 20120120
  Receipt Date: 20120111
  Transmission Date: 20120608
  Serious: Yes (Other)
  Sender: FDA-Public Use
  Company Number: US-RB-033900-11

PATIENT
  Age: 36 Year
  Sex: Female

DRUGS (1)
  1. SUBOXONE [Suspect]
     Indication: PRODUCT USED FOR UNKNOWN INDICATION
     Route: 060

REACTIONS (5)
  - DRUG WITHDRAWAL SYNDROME [None]
  - PAIN [None]
  - CONDITION AGGRAVATED [None]
  - COMPLEX REGIONAL PAIN SYNDROME [None]
  - NAUSEA [None]
